FAERS Safety Report 5482158-9 (Version None)
Quarter: 2007Q4

REPORT INFORMATION
  Report Type: 
  Country: None (occurrence: None)
  Receive Date: 20071005
  Receipt Date: 20070928
  Transmission Date: 20080405
  Serious: Yes (Hospitalization)
  Sender: FDA-Public Use
  Company Number: 2007-04421

PATIENT
  Age: 40 Year
  Sex: Male

DRUGS (1)
  1. CHLOROQUINE PHOSPHATE [Suspect]
     Indication: MALARIA
     Dosage: ^COMPLETE REGIMEN 1.8 G^, ORAL
     Route: 048
     Dates: start: 19990101, end: 19990101

REACTIONS (1)
  - PSYCHOTIC DISORDER [None]
